FAERS Safety Report 6354524-0 (Version None)
Quarter: 2009Q3

REPORT INFORMATION
  Report Type: 
  Country: None (occurrence: None)
  Receive Date: 20090914
  Receipt Date: 20090908
  Transmission Date: 20100115
  Serious: Yes (Life-Threatening)
  Sender: FDA-Public Use
  Company Number: FR-ASTRAZENECA-2009SE12018

PATIENT
  Age: 21497 Day
  Sex: Female
  Weight: 83 kg

DRUGS (10)
  1. DIPRIVAN [Suspect]
     Indication: INDUCTION OF ANAESTHESIA
     Route: 042
     Dates: start: 20090115, end: 20090115
  2. ULTIVA [Suspect]
     Indication: INDUCTION OF ANAESTHESIA
     Route: 042
     Dates: start: 20090115, end: 20090115
  3. KETAMINE HCL [Suspect]
     Indication: INDUCTION OF ANAESTHESIA
     Route: 042
     Dates: start: 20090115, end: 20090115
  4. AMAREL [Concomitant]
  5. STAGID [Concomitant]
  6. CRESTOR [Concomitant]
  7. ODRIK [Concomitant]
     Route: 048
  8. INEXIUM [Concomitant]
  9. KARDEGIC [Concomitant]
  10. LANTUS [Concomitant]

REACTIONS (3)
  - ANAPHYLACTOID REACTION [None]
  - SKIN TEST NEGATIVE [None]
  - URTICARIA [None]
